FAERS Safety Report 5981606-5 (Version None)
Quarter: 2008Q4

REPORT INFORMATION
  Report Type: 
  Country: None (occurrence: None)
  Receive Date: 20081202
  Receipt Date: 20081121
  Transmission Date: 20090506
  Serious: Yes (Other)
  Sender: FDA-Public Use
  Company Number: CC08-642

PATIENT
  Age: 22 Year
  Sex: Female

DRUGS (1)
  1. PRIMATENE MIST [Suspect]
     Indication: ASTHMA
     Dosage: 2 ACUTATIONS AS NEEDED

REACTIONS (1)
  - NO THERAPEUTIC RESPONSE [None]
